FAERS Safety Report 17988505 (Version 1)
Quarter: 2020Q3

REPORT INFORMATION
  Report Type: Spontaneous
  Country: US (occurrence: US)
  Receive Date: 20200706
  Receipt Date: 20200706
  Transmission Date: 20201103
  Serious: Yes (Hospitalization)
  Sender: FDA-Public Use
  Company Number: None

PATIENT
  Age: 65 Year
  Sex: Female
  Weight: 49.7 kg

DRUGS (4)
  1. LORAZEPAM PO [Concomitant]
  2. OLANZAPINE PO [Concomitant]
  3. LITHIUM. [Suspect]
     Active Substance: LITHIUM
     Indication: BIPOLAR I DISORDER
     Route: 048
  4. BENZTROPINE PO [Concomitant]

REACTIONS (7)
  - Delirium [None]
  - Blood creatinine increased [None]
  - Blood calcium increased [None]
  - Confusional state [None]
  - Blood electrolytes abnormal [None]
  - Cognitive disorder [None]
  - Blood sodium increased [None]

NARRATIVE: CASE EVENT DATE: 20200618
